FAERS Safety Report 9687222 (Version 2)
Quarter: 2013Q4

REPORT INFORMATION
  Report Type: Spontaneous
  Country: US (occurrence: US)
  Receive Date: 20131113
  Receipt Date: 20131229
  Transmission Date: 20140711
  Serious: No
  Sender: FDA-Public Use
  Company Number: US-TEVA-444238USA

PATIENT
  Age: 32 Year
  Sex: Female

DRUGS (2)
  1. PARAGARD 380A [Suspect]
     Indication: CONTRACEPTION
     Route: 015
     Dates: start: 20131007, end: 20131108
  2. LEVOTHYROXINE [Concomitant]
     Dosage: 25 MICROGRAM DAILY;
     Route: 048

REACTIONS (4)
  - Micturition urgency [Recovered/Resolved]
  - Bladder discomfort [Recovered/Resolved]
  - Urinary tract infection [Recovered/Resolved]
  - Device expulsion [Unknown]
